FAERS Safety Report 10018362 (Version 1)
Quarter: 2014Q1

REPORT INFORMATION
  Report Type: Spontaneous
  Country: CN (occurrence: CN)
  Receive Date: 20140318
  Receipt Date: 20140318
  Transmission Date: 20141002
  Serious: Yes (Other)
  Sender: FDA-Public Use
  Company Number: CN-BAYER-2014-036487

PATIENT
  Sex: 0

DRUGS (1)
  1. CIPROFLOXACIN MONOHYDROCHLORIDE [Suspect]
     Indication: PNEUMONIA MYCOPLASMAL

REACTIONS (2)
  - Pleural effusion [None]
  - Pyrexia [Recovered/Resolved]
